FAERS Safety Report 6850164-5 (Version None)
Quarter: 2010Q3

REPORT INFORMATION
  Report Type: 
  Country: None (occurrence: None)
  Receive Date: 20100716
  Receipt Date: 20071117
  Transmission Date: 20110219
  Serious: No
  Sender: FDA-Public Use
  Company Number: US-PFIZER INC-2007086274

PATIENT
  Sex: Female
  Weight: 90.909 kg

DRUGS (13)
  1. CHANTIX [Suspect]
     Indication: SMOKING CESSATION THERAPY
     Dates: start: 20070901
  2. PROTONIX [Concomitant]
  3. SPIRIVA [Concomitant]
  4. ADVAIR DISKUS 100/50 [Concomitant]
  5. COUMADIN [Concomitant]
  6. POTASSIUM CHLORIDE [Concomitant]
  7. ZYRTEC [Concomitant]
  8. SINGULAIR [Concomitant]
  9. MAGNESIUM OXIDE [Concomitant]
  10. CLONAZEPAM [Concomitant]
  11. PREDNISONE [Concomitant]
  12. ZETIA [Concomitant]
  13. PAROXETINE [Concomitant]

REACTIONS (9)
  - ABDOMINAL DISTENSION [None]
  - ABNORMAL DREAMS [None]
  - CONSTIPATION [None]
  - FEELING ABNORMAL [None]
  - LIMB DISCOMFORT [None]
  - NAUSEA [None]
  - NIGHTMARE [None]
  - ORAL PAIN [None]
  - PAROSMIA [None]
